FAERS Safety Report 23673529 (Version 1)
Quarter: 2024Q1

REPORT INFORMATION
  Report Type: Spontaneous
  Country: US (occurrence: US)
  Receive Date: 20240326
  Receipt Date: 20240326
  Transmission Date: 20240410
  Serious: No
  Sender: FDA-Public Use
  Company Number: US-Harrow Eye-2154802

PATIENT
  Sex: Female

DRUGS (1)
  1. TOBRADEX ST [Suspect]
     Active Substance: DEXAMETHASONE\TOBRAMYCIN
     Indication: Premedication
     Route: 047

REACTIONS (6)
  - Ocular hyperaemia [Unknown]
  - Arthralgia [Unknown]
  - Pain [Unknown]
  - Eye inflammation [Unknown]
  - Conjunctivitis [Unknown]
  - Lacrimation increased [Unknown]
